FAERS Safety Report 16363698 (Version 1)
Quarter: 2019Q2

REPORT INFORMATION
  Report Type: Spontaneous
  Country: FR (occurrence: FR)
  Receive Date: 20190528
  Receipt Date: 20190528
  Transmission Date: 20190711
  Serious: Yes (Other)
  Sender: FDA-Public Use
  Company Number: FR-PFIZER INC-2019217931

PATIENT
  Age: 53 Year
  Sex: Female

DRUGS (1)
  1. NEURONTIN [Suspect]
     Active Substance: GABAPENTIN
     Indication: ESSENTIAL TREMOR
     Dosage: 1 DF, 1X/DAY
     Route: 048
     Dates: start: 20180905, end: 20180911

REACTIONS (5)
  - Hyperphagia [Recovered/Resolved]
  - Off label use [Unknown]
  - Product use in unapproved indication [Unknown]
  - Libido increased [Recovered/Resolved]
  - Hypersexuality [Recovered/Resolved]

NARRATIVE: CASE EVENT DATE: 20180905
